FAERS Safety Report 18818684 (Version 2)
Quarter: 2021Q1

REPORT INFORMATION
  Report Type: Spontaneous
  Country: US (occurrence: US)
  Receive Date: 20210202
  Receipt Date: 20210211
  Transmission Date: 20210419
  Serious: No
  Sender: FDA-Public Use
  Company Number: US-BAUSCH-BL-2021-003798

PATIENT
  Age: 71 Year
  Sex: Male

DRUGS (2)
  1. RETIN?A [Suspect]
     Active Substance: TRETINOIN
     Dosage: REDUCED STRENGTH
     Route: 065
  2. RETIN?A [Suspect]
     Active Substance: TRETINOIN
     Indication: PRODUCT USED FOR UNKNOWN INDICATION
     Dosage: UNSPECIFIED STRENGTH
     Route: 065

REACTIONS (3)
  - Skin irritation [Unknown]
  - Skin exfoliation [Unknown]
  - Application site erythema [Unknown]
